FAERS Safety Report 10508747 (Version 1)
Quarter: 2014Q4

REPORT INFORMATION
  Report Type: Report from Study
  Country: US (occurrence: US)
  Receive Date: 20141009
  Receipt Date: 20141009
  Transmission Date: 20150528
  Serious: Yes (Other)
  Sender: FDA-Public Use
  Company Number: PHEH2014US019569

PATIENT
  Sex: Male

DRUGS (1)
  1. ILARIS [Suspect]
     Active Substance: CANAKINUMAB
     Indication: PRODUCT USED FOR UNKNOWN INDICATION
     Dosage: 150 MG, EVERY 8 WEEKS
     Route: 058

REACTIONS (9)
  - Pyrexia [Unknown]
  - Sleep disorder [Unknown]
  - Hypersensitivity [Unknown]
  - Feeling cold [Unknown]
  - Vomiting [Unknown]
  - Haematuria [Unknown]
  - Seizure [Unknown]
  - Hypoxia [Unknown]
  - Inappropriate schedule of drug administration [Unknown]
